FAERS Safety Report 4511642-7 (Version None)
Quarter: 2004Q4

REPORT INFORMATION
  Report Type: 
  Country: None (occurrence: None)
  Receive Date: 20041129
  Receipt Date: 20041025
  Transmission Date: 20050328
  Serious: Yes (Other)
  Sender: FDA-Public Use
  Company Number: US-BRISTOL-MYERS SQUIBB COMPANY-12743803

PATIENT
  Age: 68 Year
  Sex: Male

DRUGS (3)
  1. ABILIFY [Suspect]
     Dosage: DECREASED TO 5 MG/DAY
     Route: 048
  2. LEXAPRO [Concomitant]
  3. BUSPAR [Concomitant]

REACTIONS (2)
  - CEREBROVASCULAR ACCIDENT [None]
  - GAIT DISTURBANCE [None]
